FAERS Safety Report 9814585 (Version 2)
Quarter: 2014Q1

REPORT INFORMATION
  Report Type: Spontaneous
  Country: US (occurrence: US)
  Receive Date: 20140113
  Receipt Date: 20140129
  Transmission Date: 20141002
  Serious: Yes (Hospitalization)
  Sender: FDA-Public Use
  Company Number: US-B.I. PHARMACEUTICALS,INC./RIDGEFIELD-2014-BI-00467BP

PATIENT
  Age: 79 Year
  Sex: Male
  Weight: 90.72 kg

DRUGS (3)
  1. PRADAXA [Suspect]
     Indication: ANTICOAGULANT THERAPY
     Dosage: 300 MG
     Route: 048
     Dates: start: 20120503, end: 20120727
  2. PRADAXA [Suspect]
     Indication: THROMBOSIS PROPHYLAXIS
     Dates: start: 20120802, end: 20120806
  3. ECOTRIN [Concomitant]

REACTIONS (7)
  - Gastrointestinal haemorrhage [Unknown]
  - Epistaxis [Unknown]
  - Eye haemorrhage [Unknown]
  - Gastrooesophageal reflux disease [Unknown]
  - Dyspepsia [Unknown]
  - Eye pain [Unknown]
  - Balance disorder [Unknown]
